FAERS Safety Report 4485814-4 (Version None)
Quarter: 2004Q4

REPORT INFORMATION
  Report Type: 
  Country: None (occurrence: None)
  Receive Date: 20041021
  Receipt Date: 20041006
  Transmission Date: 20050328
  Serious: Yes (Death)
  Sender: FDA-Public Use
  Company Number: 2004AL000687

PATIENT
  Age: 53 Year

DRUGS (4)
  1. KADIAN [Suspect]
     Dosage: PO
     Route: 048
  2. TRAMADOL HCL [Suspect]
     Dosage: PO
     Route: 048
  3. AMITRIPTYLINE HCL [Suspect]
     Dosage: PO
     Route: 048
  4. CODEINE [Suspect]
     Dosage: PO
     Route: 048

REACTIONS (4)
  - CARDIAC ARREST [None]
  - COMPLETED SUICIDE [None]
  - MULTIPLE DRUG OVERDOSE INTENTIONAL [None]
  - RESPIRATORY ARREST [None]
